FAERS Safety Report 5512098-8 (Version None)
Quarter: 2007Q4

REPORT INFORMATION
  Report Type: 
  Country: None (occurrence: None)
  Receive Date: 20071109
  Receipt Date: 20071105
  Transmission Date: 20080405
  Serious: Yes (Hospitalization)
  Sender: FDA-Public Use
  Company Number: GB-BOEHRINGER INGELHEIM PHARMACEUTICALS, INC.-2007-DE-06571GD

PATIENT
  Age: 77 Year
  Sex: Male

DRUGS (3)
  1. TIOTROPIUM-BROMIDE [Suspect]
     Indication: CHRONIC OBSTRUCTIVE PULMONARY DISEASE
     Route: 055
     Dates: start: 20031028
  2. PRITOR [Concomitant]
     Indication: MYOCARDIAL ISCHAEMIA
  3. AMLODIPINE [Concomitant]
     Indication: MYOCARDIAL ISCHAEMIA

REACTIONS (3)
  - CARDIAC FAILURE [None]
  - MYOCARDIAL ISCHAEMIA [None]
  - VENTRICULAR HYPOKINESIA [None]
